FAERS Safety Report 11092574 (Version 1)
Quarter: 2015Q2

REPORT INFORMATION
  Report Type: Spontaneous
  Country: FR (occurrence: None)
  Receive Date: 20150504
  Receipt Date: 20150504
  Transmission Date: 20150821
  Serious: No
  Sender: FDA-Public Use
  Company Number: FR2015GSK056630

PATIENT
  Age: 54 Year
  Sex: Female

DRUGS (3)
  1. TIVICAY [Suspect]
     Active Substance: DOLUTEGRAVIR SODIUM
     Indication: HIV INFECTION
     Dosage: U, ORAL
     Route: 048
     Dates: start: 20141103, end: 20150115
  2. ISENTRESS [Concomitant]
     Active Substance: RALTEGRAVIR POTASSIUM
  3. KIVEXA (ABACAVIR SULPHATE, LAMIVUDINE) [Concomitant]

REACTIONS (2)
  - Depression [None]
  - Discomfort [None]

NARRATIVE: CASE EVENT DATE: 20141111
